FAERS Safety Report 12314322 (Version 1)
Quarter: 2016Q2

REPORT INFORMATION
  Report Type: Spontaneous
  Country: US (occurrence: US)
  Receive Date: 20160428
  Receipt Date: 20160428
  Transmission Date: 20160815
  Serious: No
  Sender: FDA-Public Use
  Company Number: US-MALLINCKRODT-T201504480

PATIENT
  Age: 40 Year
  Sex: Female

DRUGS (3)
  1. DIPHENHYDRAMINE. [Concomitant]
     Active Substance: DIPHENHYDRAMINE
     Dosage: 25 MG, BID
  2. OPTIRAY [Suspect]
     Active Substance: IOVERSOL
     Indication: COMPUTERISED TOMOGRAM ABDOMEN
     Dosage: 90 ML, SINGLE
     Route: 042
     Dates: start: 20150922, end: 20150922
  3. OPTIRAY [Suspect]
     Active Substance: IOVERSOL
     Indication: COMPUTERISED TOMOGRAM PELVIS

REACTIONS (3)
  - Erythema [Unknown]
  - Burning sensation [Unknown]
  - Urticaria [Unknown]

NARRATIVE: CASE EVENT DATE: 20150922
